FAERS Safety Report 8150719-4 (Version None)
Quarter: 2012Q1

REPORT INFORMATION
  Report Type: 
  Country: None (occurrence: None)
  Receive Date: 20120220
  Receipt Date: 20120215
  Transmission Date: 20120608
  Serious: No
  Sender: FDA-Public Use
  Company Number: US-BAYER-2012-016226

PATIENT
  Age: 48 Year
  Sex: Male
  Weight: 73 kg

DRUGS (2)
  1. ALEVE (CAPLET) [Suspect]
     Dosage: 2 U, BID
     Route: 048
     Dates: start: 20120101, end: 20120214
  2. EAS MULTIVITAMIN SHAKE [Concomitant]

REACTIONS (1)
  - RENAL PAIN [None]
